FAERS Safety Report 24788794 (Version 1)
Quarter: 2024Q4

REPORT INFORMATION
  Report Type: Spontaneous
  Country: US (occurrence: US)
  Receive Date: 20241230
  Receipt Date: 20241230
  Transmission Date: 20250115
  Serious: Yes (Hospitalization, Other)
  Sender: GLAXOSMITHKLINE
  Company Number: US-GLAXOSMITHKLINE INC-US2024162874

PATIENT

DRUGS (1)
  1. TRELEGY ELLIPTA [Suspect]
     Active Substance: FLUTICASONE FUROATE\UMECLIDINIUM BROMIDE\VILANTEROL TRIFENATATE
     Indication: Lung neoplasm malignant
     Dosage: 1 PUFF(S), QD
     Dates: start: 20220101

REACTIONS (3)
  - Brain cancer metastatic [Unknown]
  - Lung cancer metastatic [Unknown]
  - Product use in unapproved indication [Unknown]
